FAERS Safety Report 7115800-7 (Version None)
Quarter: 2010Q4

REPORT INFORMATION
  Report Type: 
  Country: None (occurrence: None)
  Receive Date: 20101122
  Receipt Date: 20100908
  Transmission Date: 20110411
  Serious: Yes (Hospitalization)
  Sender: FDA-Public Use
  Company Number: US-BAYER-201013661NA

PATIENT
  Age: 40 Year
  Sex: Female
  Weight: 136 kg

DRUGS (34)
  1. YASMIN [Suspect]
     Indication: MENSTRUATION IRREGULAR
     Route: 048
     Dates: start: 20040813, end: 20080120
  2. ZITHROMAX [Concomitant]
     Dates: start: 20090101
  3. ZITHROMAX [Concomitant]
     Dates: start: 20100101
  4. AMOXICILLIN [Concomitant]
     Dates: start: 20040101
  5. ALBUTEROL [Concomitant]
     Dates: start: 20071228
  6. LASIX [Concomitant]
     Dates: start: 19930101
  7. ADVIL [Concomitant]
  8. ALEVE (CAPLET) [Concomitant]
     Indication: BACK PAIN
  9. IBUPROFEN [Concomitant]
  10. TYLENOL (CAPLET) [Concomitant]
  11. NAPROXSYN [Concomitant]
  12. POTASSIUM CHLORIDE [Concomitant]
     Dates: start: 19930101
  13. POTASSIUM CHLORIDE [Concomitant]
     Dates: start: 20090101
  14. VICODIN [Concomitant]
     Indication: ADNEXA UTERI PAIN
     Dates: start: 20100319
  15. NEXIUM [Concomitant]
     Indication: DYSPEPSIA
  16. OMEPRAZOLE [Concomitant]
     Indication: DYSPEPSIA
     Dates: start: 20040101
  17. ONE-A-DAY WEIGHTSMART ADVANCED [Concomitant]
  18. ASCORBIC ACID [Concomitant]
  19. CENTRUM MULTIVITAMIN [Concomitant]
  20. IRON [Concomitant]
  21. MINERAL SUPPLEMENT [Concomitant]
  22. MUCINEX [Concomitant]
     Indication: PRODUCT USED FOR UNKNOWN INDICATION
  23. FAT BURNERS-GINSENG [Concomitant]
     Indication: WEIGHT INCREASED
  24. HYDROCODONE [Concomitant]
  25. ETODOLAC [Concomitant]
  26. AMBIEN [Concomitant]
  27. CYCLOBENZAPRI [Concomitant]
  28. OXYCODONE HCL AND ACETAMINOPHEN [Concomitant]
  29. PHENTERMINE [Concomitant]
  30. PROMETH/COD [Concomitant]
  31. AZITHROMYCIN [Concomitant]
  32. PROPO-N/APAP [Concomitant]
     Dosage: 100-650
  33. METHYLPREDNISOLONE [Concomitant]
  34. FLEXERIL [Concomitant]
     Indication: BACK PAIN

REACTIONS (18)
  - ABDOMINAL ADHESIONS [None]
  - ABDOMINAL PAIN [None]
  - ABDOMINAL PAIN UPPER [None]
  - CHEST DISCOMFORT [None]
  - CHEST PAIN [None]
  - CHILLS [None]
  - CHOLECYSTITIS ACUTE [None]
  - CHOLELITHIASIS [None]
  - DEEP VEIN THROMBOSIS [None]
  - DIZZINESS [None]
  - DYSPNOEA [None]
  - DYSPNOEA AT REST [None]
  - DYSPNOEA EXERTIONAL [None]
  - GALLBLADDER CHOLESTEROLOSIS [None]
  - OEDEMA PERIPHERAL [None]
  - PAIN IN EXTREMITY [None]
  - PLEURISY [None]
  - PULMONARY EMBOLISM [None]
